FAERS Safety Report 23241739 (Version 1)
Quarter: 2023Q4

REPORT INFORMATION
  Report Type: Spontaneous
  Country: US (occurrence: US)
  Receive Date: 20231129
  Receipt Date: 20231129
  Transmission Date: 20240110
  Serious: Yes (Hospitalization)
  Sender: FDA-Public Use
  Company Number: US-AMGEN-USASP2023210396

PATIENT
  Age: 68 Year
  Sex: Male

DRUGS (2)
  1. ADALIMUMAB [Suspect]
     Active Substance: ADALIMUMAB\ISOPROPYL ALCOHOL
     Indication: Rheumatoid arthritis
     Dosage: UNK
     Route: 065
  2. NABUMETONE [Concomitant]
     Active Substance: NABUMETONE
     Dosage: 1.5 GRAM, QD
     Route: 065

REACTIONS (3)
  - Tubulointerstitial nephritis [Unknown]
  - Hyperkalaemia [Recovering/Resolving]
  - Osteomyelitis [Unknown]
